FAERS Safety Report 8111157-3 (Version None)
Quarter: 2012Q1

REPORT INFORMATION
  Report Type: 
  Country: None (occurrence: None)
  Receive Date: 20120203
  Receipt Date: 20110520
  Transmission Date: 20120608
  Serious: No
  Sender: FDA-Public Use
  Company Number: US-GLAXOSMITHKLINE-A0928363A

PATIENT
  Age: 42 Year
  Sex: Male

DRUGS (2)
  1. LAMICTAL [Suspect]
     Indication: EPILEPSY
     Dosage: 100MG TWICE PER DAY
     Route: 048
     Dates: start: 20101101
  2. NO CONCURRENT MEDICATION [Concomitant]

REACTIONS (7)
  - MEMORY IMPAIRMENT [None]
  - DIPLOPIA [None]
  - AMNESIA [None]
  - CONFUSIONAL STATE [None]
  - IMPAIRED DRIVING ABILITY [None]
  - RASH [None]
  - BLISTER [None]
